FAERS Safety Report 9518855 (Version 1)
Quarter: 2013Q1

REPORT INFORMATION
  Report Type: Spontaneous
  Country: US (occurrence: None)
  Receive Date: 20130305
  Receipt Date: 20130305
  Transmission Date: 20140127
  Serious: Yes (Other)
  Sender: FDA-Public Use
  Company Number: 163-21880-12072622

PATIENT
  Age: 58 Year
  Sex: Male
  Weight: 114.76 kg

DRUGS (15)
  1. REVLIMID [Suspect]
     Indication: PLASMA CELL MYELOMA
     Dosage: 25 MG, 21 IN 28 D, PO
     Route: 048
     Dates: start: 20070322
  2. AMBIEN (ZOLPIDEM TARTRATE) (UNKNOWN) [Concomitant]
  3. CELEBREX (CELECOXIB) (UNKNOWN) [Concomitant]
  4. PREDNISONE (PREDNISONE) (UNKNOWN) [Concomitant]
  5. ZOLPIDEM (ZOLEPIDEM) (UNKNOWN) [Concomitant]
  6. LYRICA (PREGABALIN) (UNKNOWN) [Concomitant]
  7. NORTRIPTYLINE (NORTRIPTYLINE) (UNKNOWN)? [Concomitant]
  8. AUGMENTIN (CLAVULIN) (UNKNOWN) [Concomitant]
  9. CEPHALEXIN (CEFALEXIN) (UNKNOWN) [Concomitant]
  10. BISOPROLOL (BISOPROLOL) (UNKNOWN) [Concomitant]
  11. HYDROXYZINE (HYDROXYZINE) (UNKNOWN) [Concomitant]
  12. OXYCODONE-ACETAMINOPHEN (UNKNOWN) [Concomitant]
  13. ENOXAPARIN (ENOXAPARIN) (UNKNOWN) [Concomitant]
  14. PROAIR (FLUTIASONE PROPIONATE) (UNKNOWN) [Concomitant]
  15. FLUVIRIN (INFLUENZA VIRUS VACCINE POLYVALENT) (UNKNOWN)? [Concomitant]

REACTIONS (2)
  - Drug dose omission [None]
  - Fatigue [None]
